FAERS Safety Report 5474830-1 (Version None)
Quarter: 2007Q4

REPORT INFORMATION
  Report Type: 
  Country: None (occurrence: None)
  Receive Date: 20071002
  Receipt Date: 20070924
  Transmission Date: 20080405
  Serious: Yes (Other)
  Sender: FDA-Public Use
  Company Number: CA-SANOFI-SYNTHELABO-A01200710604

PATIENT
  Age: 90 Year
  Sex: Male

DRUGS (9)
  1. DILTIAZEM CD [Concomitant]
     Indication: DRUG USE FOR UNKNOWN INDICATION
     Route: 048
     Dates: start: 20050101
  2. LIVOSTIN EYE DROPS [Concomitant]
     Indication: HYPERSENSITIVITY
     Route: 047
     Dates: start: 20070906
  3. DITROPAN XL [Concomitant]
     Indication: DRUG USE FOR UNKNOWN INDICATION
     Route: 048
     Dates: start: 20060601
  4. RANITIDINE [Concomitant]
     Indication: GASTRIC DISORDER
     Route: 048
     Dates: start: 20050101
  5. SIMVASTATIN [Suspect]
     Indication: BLOOD CHOLESTEROL INCREASED
     Route: 048
     Dates: start: 20040101, end: 20070601
  6. SIMVASTATIN [Suspect]
     Route: 048
     Dates: start: 20070601
  7. DIOVAN [Suspect]
     Indication: DRUG USE FOR UNKNOWN INDICATION
     Route: 048
     Dates: start: 20050101, end: 20070601
  8. DIOVAN [Suspect]
     Route: 048
     Dates: start: 20070601
  9. PLAVIX [Suspect]
     Indication: TRANSIENT ISCHAEMIC ATTACK
     Route: 048
     Dates: start: 20070623

REACTIONS (6)
  - ASTHENIA [None]
  - BLOOD PRESSURE INCREASED [None]
  - BRADYCARDIA [None]
  - DIZZINESS [None]
  - DYSPNOEA [None]
  - LOSS OF CONSCIOUSNESS [None]
